FAERS Safety Report 6572245-6 (Version None)
Quarter: 2010Q1

REPORT INFORMATION
  Report Type: 
  Country: None (occurrence: None)
  Receive Date: 20100205
  Receipt Date: 20100201
  Transmission Date: 20100710
  Serious: Yes (Death, Hospitalization)
  Sender: FDA-Public Use
  Company Number: PHEH2009US13520

PATIENT
  Sex: Male

DRUGS (1)
  1. EXJADE [Suspect]
     Indication: LYMPHATIC DISORDER
     Dosage: 750 MG, QD
     Route: 048

REACTIONS (3)
  - ACUTE MYOCARDIAL INFARCTION [None]
  - CARDIAC FAILURE [None]
  - SEPSIS [None]
